FAERS Safety Report 5126308-2 (Version None)
Quarter: 2006Q3

REPORT INFORMATION
  Report Type: 
  Country: None (occurrence: None)
  Receive Date: 20060825
  Receipt Date: 20060106
  Transmission Date: 20061208
  Serious: Yes (Death)
  Sender: FDA-Public Use
  Company Number: 06P-163-0321436-00

PATIENT
  Age: 83 Year
  Sex: Female

DRUGS (1)
  1. SYNTHROID [Suspect]
     Dosage: 150 MCG, PER ORAL
     Route: 048

REACTIONS (1)
  - DEATH [None]
